FAERS Safety Report 4271755-4 (Version None)
Quarter: 2004Q1

REPORT INFORMATION
  Report Type: 
  Country: None (occurrence: None)
  Receive Date: 20040113
  Receipt Date: 20031230
  Transmission Date: 20041129
  Serious: Yes (Disabling)
  Sender: FDA-Public Use
  Company Number: GB-JNJFOC-20031103250

PATIENT
  Age: 68 Year
  Sex: Female
  Weight: 90.5 kg

DRUGS (4)
  1. ZYDOL (TRAMADOL HYDROCHLORIDE) [Suspect]
     Indication: OSTEOARTHRITIS
     Dosage: SEE IMAGE
     Route: 048
     Dates: start: 20030701, end: 20030714
  2. ZYDOL (TRAMADOL HYDROCHLORIDE) [Suspect]
     Indication: OSTEOARTHRITIS
     Dosage: SEE IMAGE
     Route: 048
     Dates: start: 20030715
  3. CELEBREX [Concomitant]
  4. CO-CODAMOL (PANADEINE CO) [Concomitant]

REACTIONS (3)
  - DRUG INEFFECTIVE [None]
  - LOSS OF PROPRIOCEPTION [None]
  - NEUROPATHY PERIPHERAL [None]
